FAERS Safety Report 9135649 (Version 4)
Quarter: 2013Q2

REPORT INFORMATION
  Report Type: Spontaneous
  Country: IL (occurrence: IL)
  Receive Date: 20130304
  Receipt Date: 20130419
  Transmission Date: 20140414
  Serious: Yes (Hospitalization, Disabling)
  Sender: FDA-Public Use
  Company Number: IL-009507513-1301ISR008623

PATIENT
  Age: 50 Year
  Sex: Female
  Weight: 70 kg

DRUGS (5)
  1. VICTRELIS [Suspect]
     Indication: HEPATITIS C
     Dosage: 800 MG, TID
     Route: 048
     Dates: start: 20121201
  2. REBETOL [Suspect]
     Indication: HEPATITIS C
     Dosage: UNK
     Route: 048
  3. PEGASYS [Suspect]
     Indication: HEPATITIS C
     Dosage: UNK
  4. AUGMENTIN [Concomitant]
  5. CEFORAL [Concomitant]

REACTIONS (27)
  - Bedridden [Not Recovered/Not Resolved]
  - Muscular weakness [Not Recovered/Not Resolved]
  - Abdominal pain [Unknown]
  - Hepatomegaly [Unknown]
  - Nausea [Unknown]
  - Vomiting [Unknown]
  - Fatigue [Not Recovered/Not Resolved]
  - Gait disturbance [Not Recovered/Not Resolved]
  - Oropharyngeal pain [Not Recovered/Not Resolved]
  - Ear pain [Not Recovered/Not Resolved]
  - Bone pain [Unknown]
  - Feeling abnormal [Unknown]
  - Asthenia [Unknown]
  - Arthralgia [Unknown]
  - Pain in extremity [Unknown]
  - Blood count abnormal [Unknown]
  - Asthenia [Not Recovered/Not Resolved]
  - Back pain [Unknown]
  - Arthralgia [Unknown]
  - Weight increased [Unknown]
  - Back pain [Unknown]
  - Arthralgia [Unknown]
  - Fatigue [Unknown]
  - Myalgia [Unknown]
  - Toothache [Unknown]
  - Musculoskeletal pain [Unknown]
  - Diarrhoea [Unknown]
